FAERS Safety Report 5314575-1 (Version None)
Quarter: 2007Q2

REPORT INFORMATION
  Report Type: 
  Country: None (occurrence: None)
  Receive Date: 20070502
  Receipt Date: 20070426
  Transmission Date: 20071010
  Serious: Yes (Hospitalization)
  Sender: FDA-Public Use
  Company Number: GB-AVENTIS-200713750GDDC

PATIENT
  Age: 66 Year
  Sex: Female

DRUGS (8)
  1. LANTUS [Suspect]
     Route: 058
     Dates: start: 20050101
  2. PREDNISOLONE [Concomitant]
     Indication: TEMPORAL ARTERITIS
     Route: 048
     Dates: start: 20030101
  3. LITHIUM CARBONATE [Concomitant]
     Route: 048
     Dates: start: 19900101
  4. CHLORIMIPRAMINE [Concomitant]
     Route: 048
     Dates: start: 19470101
  5. ATORVASTATIN CALCIUM [Concomitant]
     Route: 048
     Dates: start: 20040101
  6. FRUSEMIDE [Concomitant]
     Route: 048
  7. FELODIPINE [Concomitant]
     Route: 048
  8. RISEDRONATE SODIUM [Concomitant]
     Route: 048

REACTIONS (1)
  - CELLULITIS [None]
